FAERS Safety Report 4789745-1 (Version None)
Quarter: 2005Q4

REPORT INFORMATION
  Report Type: 
  Country: None (occurrence: None)
  Receive Date: 20051006
  Receipt Date: 20050921
  Transmission Date: 20060501
  Serious: Yes (Hospitalization, Other)
  Sender: FDA-Public Use
  Company Number: US-AMGEN-US151593

PATIENT
  Sex: Male
  Weight: 55 kg

DRUGS (2)
  1. PROCRIT [Suspect]
     Indication: DIALYSIS
     Route: 058
     Dates: end: 20050901
  2. AMIODARONE [Concomitant]

REACTIONS (2)
  - APLASIA PURE RED CELL [None]
  - LUNG INFECTION PSEUDOMONAL [None]
